FAERS Safety Report 4268558-3 (Version None)
Quarter: 2004Q1

REPORT INFORMATION
  Report Type: 
  Country: None (occurrence: None)
  Receive Date: 20040108
  Receipt Date: 20031229
  Transmission Date: 20041129
  Serious: Yes (Death, Other)
  Sender: FDA-Public Use
  Company Number: US-JNJFOC-20031001675

PATIENT
  Age: 78 Year
  Sex: Male

DRUGS (12)
  1. REMICADE [Suspect]
     Indication: CROHN'S DISEASE
     Dosage: 1 IN 1 DAY, INTRAVENOUS
     Route: 042
  2. HYTRIN [Concomitant]
  3. PREDNISONE [Concomitant]
  4. PLAQUENIL [Concomitant]
  5. METHOTREXATE [Concomitant]
  6. QUININE SULFATE (QUININE SULFATE) [Concomitant]
  7. IRON (IRON) [Concomitant]
  8. ZOLOFT [Concomitant]
  9. METAMUCIL-2 [Concomitant]
  10. LACTULOSE [Concomitant]
  11. KAOPETATE (KAOPETATE) [Concomitant]
  12. ASPIRIN [Concomitant]

REACTIONS (15)
  - ABDOMINAL PAIN [None]
  - BENIGN PROSTATIC HYPERPLASIA [None]
  - BLADDER CANCER [None]
  - COLONIC OBSTRUCTION [None]
  - DIARRHOEA [None]
  - FAECAL INCONTINENCE [None]
  - INTESTINAL MASS [None]
  - MICTURITION URGENCY [None]
  - NAUSEA [None]
  - PELVIC NEOPLASM [None]
  - POLLAKIURIA [None]
  - POSTOPERATIVE WOUND COMPLICATION [None]
  - URINE FLOW DECREASED [None]
  - WEIGHT DECREASED [None]
  - WOUND DRAINAGE [None]
